FAERS Safety Report 10239128 (Version 1)
Quarter: 2014Q2

REPORT INFORMATION
  Report Type: Spontaneous
  Country: CH (occurrence: CH)
  Receive Date: 20140616
  Receipt Date: 20140616
  Transmission Date: 20141212
  Serious: Yes (Hospitalization)
  Sender: FDA-Public Use
  Company Number: CH-JNJFOC-20140607829

PATIENT
  Age: 81 Year
  Sex: Male

DRUGS (6)
  1. XARELTO [Suspect]
     Indication: CEREBROVASCULAR ACCIDENT PROPHYLAXIS
     Route: 048
     Dates: start: 20140212, end: 20140220
  2. XARELTO [Suspect]
     Indication: ATRIAL FIBRILLATION
     Route: 048
     Dates: start: 20140212, end: 20140220
  3. CIPROFLOXACIN [Suspect]
     Indication: PRODUCT USED FOR UNKNOWN INDICATION
     Route: 048
     Dates: start: 20140212, end: 20140214
  4. ENALAPRIL [Concomitant]
     Route: 065
  5. INSULATARD INSULIN [Concomitant]
     Route: 065
  6. ATORVASTATIN [Concomitant]
     Route: 065

REACTIONS (1)
  - Hepatitis [Recovered/Resolved]
